FAERS Safety Report 23975838 (Version 1)
Quarter: 2024Q2

REPORT INFORMATION
  Report Type: Spontaneous
  Country: FR (occurrence: FR)
  Receive Date: 20240614
  Receipt Date: 20240614
  Transmission Date: 20240716
  Serious: Yes (Life-Threatening, Hospitalization, Other)
  Sender: FDA-Public Use
  Company Number: FR-Accord-426817

PATIENT
  Age: 15 Year
  Sex: Female
  Weight: 42 kg

DRUGS (6)
  1. VORICONAZOLE [Interacting]
     Active Substance: VORICONAZOLE
     Indication: Trichosporon infection
     Dosage: 300 MILLIGRAM, TWO TIMES A DAY (14 MG/KG/DAY)
     Route: 065
     Dates: start: 202001
  2. MIDAZOLAM [Interacting]
     Active Substance: MIDAZOLAM
     Indication: Sedation
     Dosage: 150 MICROGRAM/KILOGRAM, EVERY HOUR
     Route: 065
  3. SUFENTANIL [Interacting]
     Active Substance: SUFENTANIL
     Indication: Sedative therapy
     Dosage: UPON 1.4 U/KG/H
     Route: 065
  4. FLUDARABINE [Concomitant]
     Active Substance: FLUDARABINE PHOSPHATE
     Indication: Product used for unknown indication
     Dosage: UNK
     Route: 065
  5. BUSULFAN [Concomitant]
     Active Substance: BUSULFAN
     Indication: Product used for unknown indication
     Dosage: UNK
     Route: 065
  6. THYMOCYTE IMMUNE GLOBULIN NOS [Concomitant]
     Active Substance: THYMOCYTE IMMUNE GLOBULIN NOS
     Indication: Product used for unknown indication
     Dosage: UNK
     Route: 065

REACTIONS (9)
  - Immune reconstitution inflammatory syndrome [Recovering/Resolving]
  - Acute respiratory distress syndrome [Recovering/Resolving]
  - Drug interaction [Unknown]
  - Acute kidney injury [Recovering/Resolving]
  - Capillary leak syndrome [Recovering/Resolving]
  - Septic shock [Recovering/Resolving]
  - Cholestasis [Recovering/Resolving]
  - Agitation [Recovered/Resolved]
  - Drug level increased [Recovered/Resolved]
